FAERS Safety Report 23111605 (Version 2)
Quarter: 2023Q4

REPORT INFORMATION
  Report Type: Spontaneous
  Country: US (occurrence: US)
  Receive Date: 20231026
  Receipt Date: 20231102
  Transmission Date: 20240109
  Serious: Yes (Other)
  Sender: FDA-Public Use
  Company Number: US-TEVA-2023-US-2937445

PATIENT
  Age: 13 Year
  Sex: Female

DRUGS (4)
  1. AZITHROMYCIN [Suspect]
     Active Substance: AZITHROMYCIN
     Indication: Infection
     Dosage: 12.5 ML DAILY; 200/5 MG/ML
     Route: 065
  2. AZITHROMYCIN [Suspect]
     Active Substance: AZITHROMYCIN
     Dosage: 6.25 ML DAILY; 200/5 MG/ML
     Route: 065
  3. AMOXICILLIN [Suspect]
     Active Substance: AMOXICILLIN
     Indication: Product used for unknown indication
     Dosage: FORM STRENGTH: 200/5 MG/ML?ORAL POWDER FOR SUSPENSION
     Route: 065
  4. XYZAL [Concomitant]
     Active Substance: LEVOCETIRIZINE DIHYDROCHLORIDE
     Indication: Hypersensitivity
     Route: 065

REACTIONS (2)
  - Anaphylactic reaction [Unknown]
  - Hypersensitivity [Not Recovered/Not Resolved]
